FAERS Safety Report 18339072 (Version 1)
Quarter: 2020Q4

REPORT INFORMATION
  Report Type: Spontaneous
  Country: US (occurrence: US)
  Receive Date: 20201002
  Receipt Date: 20201002
  Transmission Date: 20210113
  Serious: Yes (Hospitalization)
  Sender: FDA-Public Use
  Company Number: None

PATIENT
  Age: 48 Year
  Sex: Male
  Weight: 84.9 kg

DRUGS (2)
  1. REMDESIVIR. [Suspect]
     Active Substance: REMDESIVIR
     Indication: COVID-19
     Route: 042
     Dates: start: 20200930
  2. DEXAMETHASONE 4MG TABLET (6MG DOSE) [Concomitant]
     Dates: start: 20200929

REACTIONS (3)
  - Product dose omission issue [None]
  - Expired product administered [None]
  - Product storage error [None]

NARRATIVE: CASE EVENT DATE: 20201002
